FAERS Safety Report 9681203 (Version 3)
Quarter: 2013Q4

REPORT INFORMATION
  Report Type: Report from Study
  Country: JP (occurrence: JP)
  Receive Date: 20131111
  Receipt Date: 20131213
  Transmission Date: 20140711
  Serious: Yes (Hospitalization, Disabling, Other)
  Sender: FDA-Public Use
  Company Number: JP-MERCK-1206USA01804

PATIENT
  Age: 70 Year
  Sex: Male

DRUGS (15)
  1. ZOLINZA CAPSULES 100MG [Suspect]
     Indication: ANAPLASTIC LARGE CELL LYMPHOMA T- AND NULL-CELL TYPES
     Dosage: 100 MG, QD
     Route: 048
     Dates: start: 20120223, end: 20130214
  2. NIDRAN [Concomitant]
     Indication: ANAPLASTIC LARGE CELL LYMPHOMA T- AND NULL-CELL TYPES
     Dosage: DAILY DOSE UNKNOWN, INTERVAL: 1 WEEK.
     Route: 061
  3. BESELNA [Concomitant]
     Indication: ANAPLASTIC LARGE CELL LYMPHOMA T- AND NULL-CELL TYPES
     Dosage: DAILY DOSE UNKNOWN
     Route: 061
     Dates: start: 20120104
  4. NU-LOTAN TABLET 50 [Concomitant]
     Indication: HYPERTENSION
     Dosage: 50 MG, QD
     Route: 048
  5. LOSARTAN POTASSIUM [Concomitant]
     Indication: HYPERTENSION
     Dosage: 50 MG, QD
     Route: 048
  6. CONIEL [Concomitant]
     Indication: HYPERTENSION
     Dosage: 8 MG, QD
     Route: 048
  7. ZETIA TABLETS 10MG [Concomitant]
     Indication: HYPERLIPIDAEMIA
     Dosage: 10 MG, QD
     Route: 048
  8. MEVAN [Concomitant]
     Indication: HYPERLIPIDAEMIA
     Dosage: 10 MG, QD
     Route: 048
  9. MAGNESIUM OXIDE [Concomitant]
     Indication: CONSTIPATION
     Dosage: FORMULATION : FGR, 1.0 G, QD
     Route: 048
  10. NOVORAPID [Concomitant]
     Indication: DIABETES MELLITUS
     Dosage: DAILY DOSE UNKNOWN, BID
     Route: 058
  11. BAYASPIRIN [Concomitant]
     Indication: ANGINA PECTORIS
     Dosage: 100 MG, QD
     Route: 048
  12. CHARCOAL, ACTIVATED [Concomitant]
     Indication: RENAL FAILURE CHRONIC
     Dosage: 2.0 G, TID, FORMULATION: FGR
     Route: 048
  13. KREMEZIN [Concomitant]
     Indication: RENAL FAILURE CHRONIC
     Dosage: 2 G, TID, FORMULATION: FGR.
     Route: 048
  14. URSO [Concomitant]
     Indication: CHRONIC HEPATITIS C
     Dosage: 100 MG, TID
     Route: 048
  15. RETICOLAN [Concomitant]
     Indication: NEUROPATHY PERIPHERAL
     Dosage: 500 MICROGRAM, TID
     Route: 065

REACTIONS (5)
  - Hepatocellular carcinoma [Not Recovered/Not Resolved]
  - Renal failure chronic [Recovering/Resolving]
  - Malaise [Not Recovered/Not Resolved]
  - Hepatic function abnormal [Recovering/Resolving]
  - Hepatic function abnormal [Recovering/Resolving]
